FAERS Safety Report 5907243-6 (Version None)
Quarter: 2008Q4

REPORT INFORMATION
  Report Type: 
  Country: None (occurrence: None)
  Receive Date: 20081003
  Receipt Date: 20080926
  Transmission Date: 20090506
  Serious: Yes (Other)
  Sender: FDA-Public Use
  Company Number: PHHY2008DE11996

PATIENT
  Sex: Female

DRUGS (3)
  1. RASILEZ [Suspect]
     Dosage: 150 MG, QD
     Dates: start: 20080528, end: 20080608
  2. RASILEZ [Suspect]
     Dosage: 1.5 X 150 MG/DAY
     Dates: start: 20080609
  3. THYRONAJOD [Concomitant]

REACTIONS (3)
  - DIZZINESS [None]
  - DYSPNOEA [None]
  - PULSE PRESSURE DECREASED [None]
